FAERS Safety Report 6618537-3 (Version None)
Quarter: 2010Q1

REPORT INFORMATION
  Report Type: 
  Country: None (occurrence: None)
  Receive Date: 20100308
  Receipt Date: 20100225
  Transmission Date: 20100710
  Serious: Yes (Other)
  Sender: FDA-Public Use
  Company Number: GR-GENENTECH-298807

PATIENT
  Age: 43 Year
  Sex: Female

DRUGS (4)
  1. MABTHERA [Suspect]
     Indication: RHEUMATOID ARTHRITIS
     Dosage: 1000 MG, UNK
     Route: 042
     Dates: start: 20090501
  2. SOLU-MEDROL [Concomitant]
     Indication: PREMEDICATION
     Dosage: 100 MG, UNK
  3. VOLTAREN [Concomitant]
     Indication: PREMEDICATION
     Dosage: UNK
  4. DEPON [Concomitant]
     Indication: PREMEDICATION
     Dosage: UNK

REACTIONS (1)
  - BLADDER PAIN [None]
